FAERS Safety Report 4590806-0 (Version None)
Quarter: 2005Q1

REPORT INFORMATION
  Report Type: 
  Country: None (occurrence: None)
  Receive Date: 20050225
  Receipt Date: 20050216
  Transmission Date: 20050727
  Serious: Yes (Other)
  Sender: FDA-Public Use
  Company Number: 200510525JP

PATIENT
  Age: 70 Year
  Sex: Male

DRUGS (2)
  1. TAXOTERE [Suspect]
     Route: 013
     Dates: start: 20040212, end: 20041101
  2. CISPLATIN [Concomitant]
     Dates: start: 20040212, end: 20041101

REACTIONS (1)
  - HAEMOLYTIC ANAEMIA [None]
